FAERS Safety Report 10930583 (Version 1)
Quarter: 2015Q1

REPORT INFORMATION
  Report Type: Spontaneous
  Country: None (occurrence: None)
  Receive Date: 20150318
  Receipt Date: 20150318
  Transmission Date: 20150721
  Serious: Yes (Disabling)
  Sender: FDA-Public Use
  Company Number: None

PATIENT
  Age: 46 Year
  Sex: Male

DRUGS (1)
  1. SOVALDI [Suspect]
     Active Substance: SOFOSBUVIR
     Indication: HEPATITIS C
     Dosage: 1 QD ORAL
     Route: 048
     Dates: start: 20140501, end: 20140731

REACTIONS (4)
  - Amnesia [None]
  - Insomnia [None]
  - Anger [None]
  - Eating disorder [None]

NARRATIVE: CASE EVENT DATE: 20150317
